FAERS Safety Report 10266027 (Version 2)
Quarter: 2014Q2

REPORT INFORMATION
  Report Type: Spontaneous
  Country: GB (occurrence: GB)
  Receive Date: 20140627
  Receipt Date: 20140627
  Transmission Date: 20141212
  Serious: Yes (Other)
  Sender: FDA-Public Use
  Company Number: GB-ASTELLAS-2014EU001990

PATIENT
  Age: 51 Year
  Sex: Female

DRUGS (1)
  1. BETMIGA [Suspect]
     Indication: INCONTINENCE
     Route: 048
     Dates: start: 20140314, end: 20140330

REACTIONS (2)
  - Pain [Unknown]
  - Dyspnoea [Recovered/Resolved]
